FAERS Safety Report 25748190 (Version 1)
Quarter: 2025Q3

REPORT INFORMATION
  Report Type: Spontaneous
  Country: GB (occurrence: GB)
  Receive Date: 20250901
  Receipt Date: 20250901
  Transmission Date: 20251020
  Serious: Yes (Other)
  Sender: TEVA
  Company Number: None

PATIENT
  Sex: Female

DRUGS (4)
  1. DOXYCYCLINE [Suspect]
     Active Substance: DOXYCYCLINE
     Indication: Infection
     Route: 065
     Dates: start: 20250822, end: 20250827
  2. ACETAMINOPHEN [Concomitant]
     Active Substance: ACETAMINOPHEN
     Indication: Product used for unknown indication
  3. FERROUS FUMARATE [Concomitant]
     Active Substance: FERROUS FUMARATE
     Indication: Anaemia
  4. FOLIC ACID [Concomitant]
     Active Substance: FOLIC ACID
     Indication: Product used for unknown indication

REACTIONS (5)
  - Sudden hearing loss [Not Recovered/Not Resolved]
  - Asthenia [Recovering/Resolving]
  - Confusional state [Not Recovered/Not Resolved]
  - Sight disability [Not Recovered/Not Resolved]
  - Brain fog [Not Recovered/Not Resolved]

NARRATIVE: CASE EVENT DATE: 20250801
